FAERS Safety Report 4492487-3 (Version None)
Quarter: 2004Q4

REPORT INFORMATION
  Report Type: 
  Country: None (occurrence: None)
  Receive Date: 20041029
  Receipt Date: 20041020
  Transmission Date: 20050328
  Serious: Yes (Hospitalization)
  Sender: FDA-Public Use
  Company Number: STA-AE-04-MTX-506

PATIENT
  Age: 58 Year

DRUGS (6)
  1. METHOTREXATE [Suspect]
     Indication: RHEUMATOID ARTHRITIS
     Dosage: 22.5 MG 1X PER 1 WK
     Dates: start: 20030501, end: 20040701
  2. KINERET (ANAKINRA, 0) [Suspect]
     Indication: RHEUMATOID ARTHRITIS
     Dosage: SC
     Route: 058
     Dates: end: 20040607
  3. HUMIRA [Concomitant]
  4. ENBREL [Concomitant]
  5. PREDNISOLONE [Concomitant]
  6. CELEBREX [Concomitant]

REACTIONS (3)
  - CONDITION AGGRAVATED [None]
  - DRUG INEFFECTIVE [None]
  - RHEUMATOID ARTHRITIS [None]
